FAERS Safety Report 5297783-8 (Version None)
Quarter: 2007Q2

REPORT INFORMATION
  Report Type: 
  Country: None (occurrence: None)
  Receive Date: 20070416
  Receipt Date: 20070403
  Transmission Date: 20071010
  Serious: Yes (Hospitalization)
  Sender: FDA-Public Use
  Company Number: PHEH2007US03983

PATIENT
  Age: 29 Year
  Sex: Male

DRUGS (1)
  1. ZELNORM [Suspect]
     Indication: IRRITABLE BOWEL SYNDROME
     Dosage: UNK, UNK
     Route: 048
     Dates: start: 20050101, end: 20070301

REACTIONS (8)
  - ANGINA PECTORIS [None]
  - CARDIAC DISCOMFORT [None]
  - CARDIAC VALVE DISEASE [None]
  - CATHETERISATION CARDIAC ABNORMAL [None]
  - DISCOMFORT [None]
  - DIZZINESS [None]
  - ECHOCARDIOGRAM ABNORMAL [None]
  - ELECTROCARDIOGRAM ABNORMAL [None]
